FAERS Safety Report 5201091-0 (Version None)
Quarter: 2007Q1

REPORT INFORMATION
  Report Type: 
  Country: None (occurrence: None)
  Receive Date: 20070103
  Receipt Date: 20061221
  Transmission Date: 20070707
  Serious: Yes (Death)
  Sender: FDA-Public Use
  Company Number: 234228

PATIENT
  Age: 79 Year
  Sex: Female
  Weight: 57 kg

DRUGS (7)
  1. MABTHERA (RITUXIMAB) CONC FOR SOLUTION FOR INFUSION [Suspect]
     Indication: DRUG USE FOR UNKNOWN INDICATION
     Dosage: 375 MG, Q4W, INTRAVENOUS
     Route: 042
     Dates: start: 20061208
  2. ASPIRIN [Concomitant]
  3. ENALAPRIL MALEATE [Concomitant]
  4. SIMVASTATIN [Concomitant]
  5. CARBAMAZEPINE [Concomitant]
  6. VANCOMYCIN HYDROCHLORIDE [Concomitant]
  7. TAZOBACTAM [Concomitant]

REACTIONS (1)
  - SEPSIS [None]
